FAERS Safety Report 9050446 (Version 1)
Quarter: 2013Q1

REPORT INFORMATION
  Report Type: Spontaneous
  Country: FR (occurrence: FR)
  Receive Date: 20130205
  Receipt Date: 20130205
  Transmission Date: 20140127
  Serious: Yes (Hospitalization)
  Sender: FDA-Public Use
  Company Number: FR-BRISTOL-MYERS SQUIBB COMPANY-17322975

PATIENT
  Age: 54 Year
  Sex: Male

DRUGS (5)
  1. SUSTIVA [Suspect]
     Indication: HIV INFECTION
     Route: 048
  2. REYATAZ [Suspect]
     Indication: HIV INFECTION
     Route: 048
  3. NORVIR [Suspect]
     Indication: HIV INFECTION
     Route: 048
  4. TAZOCILLINE [Suspect]
     Route: 042
  5. KIVEXA [Suspect]
     Indication: HIV INFECTION
     Route: 048

REACTIONS (3)
  - Convulsion [Not Recovered/Not Resolved]
  - Bone marrow transplant [Unknown]
  - Renal impairment [Unknown]
